FAERS Safety Report 8941928 (Version 1)
Quarter: 2012Q4

REPORT INFORMATION
  Report Type: 
  Country: US (occurrence: US)
  Receive Date: 20121203
  Receipt Date: 20121203
  Transmission Date: 20130627
  Serious: No
  Sender: FDA-Public Use
  Company Number: US-009507513-1212USA000335

PATIENT
  Age: 21 Year
  Sex: Male

DRUGS (2)
  1. CLARITIN [Suspect]
     Indication: HYPERSENSITIVITY
     Dosage: 10 mg, hs
     Dates: start: 20121018
  2. CLARITIN [Suspect]
     Dosage: 10 mg, qam
     Route: 048
     Dates: start: 20121019

REACTIONS (1)
  - Overdose [Unknown]
